FAERS Safety Report 12727668 (Version 2)
Quarter: 2016Q3

REPORT INFORMATION
  Report Type: Spontaneous
  Country: US (occurrence: US)
  Receive Date: 20160909
  Receipt Date: 20160922
  Transmission Date: 20161109
  Serious: No
  Sender: FDA-Public Use
  Company Number: US-PFIZER INC-2016422041

PATIENT
  Age: 46 Year
  Sex: Male

DRUGS (2)
  1. CYTOMEL [Suspect]
     Active Substance: LIOTHYRONINE SODIUM
     Dosage: 60 UG, DAILY, (5 UG 12 TABLETS A DAY)
  2. CYTOMEL [Suspect]
     Active Substance: LIOTHYRONINE SODIUM
     Indication: THYROID DISORDER
     Dosage: 10 UG, 4X/DAY (5UG TWO TABLETS 4 TIMES A DAY)
     Dates: start: 20150730

REACTIONS (1)
  - Drug ineffective [Unknown]
